FAERS Safety Report 13445889 (Version 1)
Quarter: 2017Q2

REPORT INFORMATION
  Report Type: Spontaneous
  Country: US (occurrence: US)
  Receive Date: 20170417
  Receipt Date: 20170417
  Transmission Date: 20170830
  Serious: No
  Sender: FDA-Public Use
  Company Number: US-BION-005913

PATIENT
  Sex: Female

DRUGS (1)
  1. ALEVE [Suspect]
     Active Substance: NAPROXEN SODIUM
     Indication: PAIN PROPHYLAXIS

REACTIONS (3)
  - Product use issue [Unknown]
  - Incorrect drug administration duration [Not Recovered/Not Resolved]
  - Drug prescribing error [Not Recovered/Not Resolved]
